FAERS Safety Report 10736786 (Version 2)
Quarter: 2015Q1

REPORT INFORMATION
  Report Type: Spontaneous
  Country: US (occurrence: US)
  Receive Date: 20150126
  Receipt Date: 20150303
  Transmission Date: 20150721
  Serious: No
  Sender: FDA-Public Use
  Company Number: US-PFIZER INC-2015023922

PATIENT
  Age: 35 Year
  Sex: Female

DRUGS (14)
  1. LYRICA [Suspect]
     Active Substance: PREGABALIN
     Indication: PAIN
     Dosage: 300 MG, 2X/DAY
     Route: 048
     Dates: start: 20141117
  2. LYRICA [Suspect]
     Active Substance: PREGABALIN
     Indication: FIBROMYALGIA
     Dosage: 150 MG CAPSULE, TAKE 2 CAPSULE IN MORNING, 2 IN EVENING
     Dates: start: 20141218
  3. CLONAZEPAM. [Concomitant]
     Active Substance: CLONAZEPAM
     Dosage: 0.75 MG, 1X/DAY (0.5 MG 1.5 TABLET AT BED TIME)
     Route: 048
     Dates: start: 20141117
  4. CYANOCOBALAMIN. [Concomitant]
     Active Substance: CYANOCOBALAMIN
     Dosage: 1000 MCG/ML, 1 ML ONCE A MONTH
     Route: 030
     Dates: start: 20141117
  5. XANAX [Concomitant]
     Active Substance: ALPRAZOLAM
     Dosage: 0.5 MG, 3 TIMES DAILY AS NEEDED
     Route: 048
     Dates: start: 20141117
  6. TYLENOL [Concomitant]
     Active Substance: ACETAMINOPHEN
     Dosage: 500 MG/ 15 ML ORAL LIQUID USE AS DIRECTED
     Route: 048
     Dates: start: 20141117
  7. ZYRTEC [Concomitant]
     Active Substance: CETIRIZINE HYDROCHLORIDE
     Dosage: 10 MG, DAILY AS NEEDED
     Route: 048
     Dates: start: 20141117
  8. VITAMIN D [Concomitant]
     Active Substance: CHOLECALCIFEROL
     Dosage: 2000 IU, DAILY
     Dates: start: 20141117
  9. JUNEL FE 1.5/30 [Concomitant]
     Active Substance: ETHINYL ESTRADIOL\NORETHINDRONE ACETATE
     Dosage: ETHINYLESTRADIOL 30MCG, NORETHISTERONE ACETATE 1.5 MG, DAILY AS DIRECTED
     Route: 048
  10. METHOCARBAMOL. [Concomitant]
     Active Substance: METHOCARBAMOL
     Dosage: 750 MG, ONE TABLET AT BEDTIME AS NEEDED
     Route: 048
     Dates: start: 20141117
  11. COENZYME Q10 [Concomitant]
     Active Substance: UBIDECARENONE
     Dosage: 200 MG ORAL CAPSULE, TWO TABLETS, 2X/DAY
     Route: 048
     Dates: start: 20150202
  12. VITAMIN D3 [Concomitant]
     Active Substance: CHOLECALCIFEROL
     Dosage: 1000 IU, DAILY
     Route: 048
     Dates: start: 20141117
  13. ATORVASTATIN CALCIUM. [Concomitant]
     Active Substance: ATORVASTATIN CALCIUM
     Dosage: 80 MG, DAILY
     Route: 048
     Dates: start: 20150202
  14. MAGNESIUM [Concomitant]
     Active Substance: MAGNESIUM
     Dosage: 200 MG, 3X/DAY (TAKE ONE TABLET THREE TIMES DAILY)
     Dates: start: 20150209

REACTIONS (1)
  - Drug ineffective [Unknown]

NARRATIVE: CASE EVENT DATE: 2014
